FAERS Safety Report 11135732 (Version 1)
Quarter: 2015Q2

REPORT INFORMATION
  Report Type: Spontaneous
  Country: US (occurrence: US)
  Receive Date: 20150526
  Receipt Date: 20150526
  Transmission Date: 20150821
  Serious: No
  Sender: FDA-Public Use
  Company Number: US-MALLINCKRODT-T201502062

PATIENT
  Age: 51 Year
  Sex: Female

DRUGS (1)
  1. H.P. ACTHAR [Suspect]
     Active Substance: CORTICOTROPIN
     Indication: SARCOIDOSIS
     Dosage: 80 UNITS EVERY 3 DAYS
     Route: 058
     Dates: start: 20150402

REACTIONS (8)
  - Mood altered [Unknown]
  - Productive cough [Not Recovered/Not Resolved]
  - Pulmonary congestion [Unknown]
  - Insomnia [Unknown]
  - Oral candidiasis [Unknown]
  - Blood glucose increased [Unknown]
  - Rash pruritic [Not Recovered/Not Resolved]
  - Dyspnoea [Unknown]

NARRATIVE: CASE EVENT DATE: 201504
